FAERS Safety Report 23842361 (Version 1)
Quarter: 2024Q2

REPORT INFORMATION
  Report Type: Spontaneous
  Country: US (occurrence: None)
  Receive Date: 20240509
  Receipt Date: 20240509
  Transmission Date: 20240716
  Serious: Yes (Hospitalization)
  Sender: FDA-Public Use
  Company Number: None

PATIENT
  Age: 6 Year
  Sex: Female

DRUGS (1)
  1. ZIEXTENZO [Suspect]
     Active Substance: PEGFILGRASTIM-BMEZ
     Indication: Diffuse large B-cell lymphoma
     Dosage: OTHER FREQUENCY : EVERY 21 DAYS;?
     Route: 058
     Dates: start: 202404

REACTIONS (2)
  - Pyrexia [None]
  - Full blood count decreased [None]

NARRATIVE: CASE EVENT DATE: 20240401
